FAERS Safety Report 10171880 (Version 1)
Quarter: 2014Q2

REPORT INFORMATION
  Report Type: Spontaneous
  Country: BE (occurrence: None)
  Receive Date: 20140512
  Receipt Date: 20140512
  Transmission Date: 20141212
  Serious: Yes (Hospitalization)
  Sender: FDA-Public Use
  Company Number: 2014P1003889

PATIENT
  Age: 61 Year
  Sex: Female

DRUGS (9)
  1. LITHIUM [Suspect]
     Indication: BIPOLAR DISORDER
  2. DICLOFENAC [Suspect]
     Indication: PAIN
  3. IBUPROFEN [Suspect]
     Indication: PAIN
  4. SERTRALINE [Concomitant]
  5. OLANZAPINE [Concomitant]
  6. TRAZODONE [Concomitant]
  7. LORAZEPAM [Concomitant]
  8. FENOFIBRATE [Concomitant]
  9. INSULIN [Concomitant]

REACTIONS (12)
  - Knee arthroplasty [None]
  - Loss of consciousness [None]
  - Hypoglycaemia [None]
  - Renal failure acute [None]
  - Agitation [None]
  - Dehydration [None]
  - Toxicity to various agents [None]
  - Blood sodium increased [None]
  - Hypercalcaemia [None]
  - Hyperglycaemia [None]
  - Drug interaction [None]
  - Glycosylated haemoglobin increased [None]
